FAERS Safety Report 21423021 (Version 2)
Quarter: 2022Q4

REPORT INFORMATION
  Report Type: Spontaneous
  Country: US (occurrence: US)
  Receive Date: 20221007
  Receipt Date: 20221109
  Transmission Date: 20230112
  Serious: No
  Sender: FDA-Public Use
  Company Number: US-009507513-2209USA004560

PATIENT
  Age: 90 Year
  Sex: Male

DRUGS (5)
  1. ZOCOR [Suspect]
     Active Substance: SIMVASTATIN
     Indication: COVID-19 treatment
     Dosage: UNK
     Route: 048
  2. MOLNUPIRAVIR [Suspect]
     Active Substance: MOLNUPIRAVIR
     Indication: COVID-19 treatment
     Dosage: 200MG/ 8X DAILY (EVERY 3 HOURS) 1600MG DAILY
     Route: 048
     Dates: start: 20220902, end: 20220907
  3. PRINIVIL [Suspect]
     Active Substance: LISINOPRIL
     Indication: COVID-19 treatment
     Dosage: UNK
     Route: 048
  4. XARELTO [Suspect]
     Active Substance: RIVAROXABAN
     Indication: COVID-19 treatment
     Dosage: UNK
  5. CARVEDILOL [Suspect]
     Active Substance: CARVEDILOL
     Indication: COVID-19 treatment
     Dosage: UNK

REACTIONS (6)
  - SARS-CoV-2 test positive [Unknown]
  - Drug ineffective [Unknown]
  - Malaise [Unknown]
  - Diarrhoea [Unknown]
  - Inappropriate schedule of product administration [Unknown]
  - Product use in unapproved indication [Unknown]

NARRATIVE: CASE EVENT DATE: 20220901
